FAERS Safety Report 7274138-8 (Version None)
Quarter: 2011Q1

REPORT INFORMATION
  Report Type: 
  Country: None (occurrence: None)
  Receive Date: 20110204
  Receipt Date: 20110121
  Transmission Date: 20110831
  Serious: No
  Sender: FDA-Public Use
  Company Number: US-BIOGENIDEC-2011BI000939

PATIENT
  Age: 46 Year
  Sex: Female

DRUGS (1)
  1. TYSABRI [Suspect]
     Indication: MULTIPLE SCLEROSIS
     Route: 042
     Dates: start: 20110103

REACTIONS (11)
  - PRURITUS [None]
  - BURNING SENSATION [None]
  - PAIN [None]
  - MUSCULOSKELETAL DISORDER [None]
  - NAUSEA [None]
  - FATIGUE [None]
  - HEADACHE [None]
  - ASTHENIA [None]
  - JOINT SWELLING [None]
  - MOBILITY DECREASED [None]
  - ARTHRALGIA [None]
